FAERS Safety Report 5099348-X (Version None)
Quarter: 2006Q3

REPORT INFORMATION
  Report Type: 
  Country: None (occurrence: None)
  Receive Date: 20060728
  Receipt Date: 20060303
  Transmission Date: 20061208
  Serious: Yes (Hospitalization)
  Sender: FDA-Public Use
  Company Number: US-JNJFOC-20060301097

PATIENT
  Age: 3 Year
  Sex: Female
  Weight: 13.1543 kg

DRUGS (2)
  1. CHILDREN'S MOTRIN [Suspect]
     Indication: PYREXIA
     Dosage: 75 MG, 2 IN 1 DAY, ORAL
     Route: 048
     Dates: start: 20060227, end: 20060228
  2. CHILDREN'S TYLENOL (SUSPENSION) ACETAMINOPHEN [Concomitant]

REACTIONS (2)
  - BLOOD URINE PRESENT [None]
  - RESTLESSNESS [None]
